FAERS Safety Report 14859184 (Version 5)
Quarter: 2018Q4

REPORT INFORMATION
  Report Type: Report from Study
  Country: DE (occurrence: DE)
  Receive Date: 20180508
  Receipt Date: 20181114
  Transmission Date: 20190204
  Serious: Yes (Hospitalization, Other)
  Sender: FDA-Public Use
  Company Number: DE-ROCHE-301150

PATIENT
  Age: 79 Year
  Sex: Female
  Weight: 67 kg

DRUGS (28)
  1. TRAMAL [Suspect]
     Active Substance: TRAMADOL
     Dosage: DOSE UNIT: 20 DROP
     Route: 048
  2. RANITIC [Suspect]
     Active Substance: RANITIDINE HYDROCHLORIDE
     Indication: PROPHYLAXIS
  3. PHENHYDAN [Suspect]
     Active Substance: PHENYTOIN
     Indication: SEIZURE
     Route: 042
     Dates: start: 20000225, end: 20000226
  4. PHENHYDAN [Suspect]
     Active Substance: PHENYTOIN
     Indication: SEIZURE
     Dosage: .
     Route: 048
     Dates: start: 20000226, end: 20000227
  5. PHENHYDAN [Suspect]
     Active Substance: PHENYTOIN
     Route: 048
  6. BEN-U-RON [Concomitant]
     Active Substance: ACETAMINOPHEN
     Indication: PAIN
     Route: 054
     Dates: start: 20000226, end: 20000226
  7. TRAMAL [Suspect]
     Active Substance: TRAMADOL
     Indication: PAIN
     Dosage: DOSE UNIT: 20 DROP  EAR EYE NOSE DROP SOLUTION
     Route: 048
  8. FURORESE [Suspect]
     Active Substance: FUROSEMIDE
     Indication: OEDEMA
     Route: 048
     Dates: start: 20000218, end: 20000224
  9. ISMO [Suspect]
     Active Substance: ISOSORBIDE MONONITRATE
     Indication: CORONARY ARTERY DISEASE
     Route: 048
     Dates: start: 20000225, end: 20000227
  10. NORVASC [Concomitant]
     Active Substance: AMLODIPINE BESYLATE
     Indication: CORONARY ARTERY DISEASE
     Route: 048
     Dates: start: 20000130, end: 20000227
  11. FURORESE [Suspect]
     Active Substance: FUROSEMIDE
     Route: 048
     Dates: start: 20000130, end: 20000218
  12. TEGRETAL [Suspect]
     Active Substance: CARBAMAZEPINE
     Indication: SEIZURE
     Route: 048
     Dates: start: 20000125, end: 20000224
  13. EUSAPRIM [Suspect]
     Active Substance: SULFAMETHOXAZOLE\TRIMETHOPRIM
     Indication: URINARY TRACT INFECTION
  14. LASIX [Suspect]
     Active Substance: FUROSEMIDE
     Indication: CORONARY ARTERY DISEASE
     Route: 048
     Dates: start: 20000225, end: 20000227
  15. LUMINALE [Suspect]
     Active Substance: PHENOBARBITAL
     Indication: SEIZURE
     Route: 030
  16. EUSAPRIM [Suspect]
     Active Substance: SULFAMETHOXAZOLE\TRIMETHOPRIM
     Indication: CYSTITIS
     Route: 048
     Dates: start: 20000226, end: 20000227
  17. ISOSORBIDDINITRAT [Suspect]
     Active Substance: ISOSORBIDE DINITRATE
     Indication: CORONARY ARTERY DISEASE
     Route: 048
     Dates: start: 20000130, end: 20000218
  18. CORANGIN [Suspect]
     Active Substance: ISOSORBIDE MONONITRATE
     Indication: CORONARY ARTERY DISEASE
     Route: 048
     Dates: start: 20000218, end: 20000224
  19. ASPIRIN. [Suspect]
     Active Substance: ASPIRIN
     Indication: CORONARY ARTERY DISEASE
     Route: 048
     Dates: start: 20000130, end: 20000227
  20. AMLODIPIN [Suspect]
     Active Substance: AMLODIPINE BESYLATE
     Indication: CORONARY ARTERY DISEASE
  21. ZANTAC [Suspect]
     Active Substance: RANITIDINE HYDROCHLORIDE
     Indication: GASTRIC ULCER
     Route: 048
     Dates: start: 20000225, end: 20000227
  22. AMLODIPIN [Suspect]
     Active Substance: AMLODIPINE BESYLATE
     Indication: CORONARY ARTERY DISEASE
     Route: 048
     Dates: start: 20000130, end: 20000220
  23. PARACETAMOL [Concomitant]
     Active Substance: ACETAMINOPHEN
     Indication: PAIN
     Route: 054
     Dates: start: 20000226, end: 20000226
  24. TRAMAL [Suspect]
     Active Substance: TRAMADOL
     Indication: PAIN
     Dosage: STAT DOSES. FORM STRENGTH=20 UNIT
     Route: 048
     Dates: start: 20000219, end: 20000223
  25. RANITIC [Suspect]
     Active Substance: RANITIDINE HYDROCHLORIDE
     Indication: GASTRIC ULCER
     Route: 048
     Dates: start: 20000218, end: 20000224
  26. PHENHYDAN [Suspect]
     Active Substance: PHENYTOIN
     Route: 042
  27. CLONAZEPAM. [Suspect]
     Active Substance: CLONAZEPAM
     Indication: SEIZURE
     Route: 042
     Dates: start: 20000224, end: 20000224
  28. DIAZEPAM. [Suspect]
     Active Substance: DIAZEPAM
     Indication: SEIZURE
     Route: 042
     Dates: start: 20000218, end: 20000225

REACTIONS (12)
  - Lip erosion [Recovered/Resolved]
  - Erythema [Recovered/Resolved]
  - Mouth ulceration [Recovered/Resolved]
  - Blister [Recovered/Resolved]
  - Pruritus [Recovered/Resolved]
  - Rash macular [Recovered/Resolved]
  - Pruritus generalised [Recovered/Resolved]
  - Eyelid oedema [Recovered/Resolved]
  - Rash erythematous [Recovered/Resolved]
  - Conjunctivitis [Recovered/Resolved]
  - Stevens-Johnson syndrome [Recovering/Resolving]
  - Genital erosion [Recovered/Resolved]

NARRATIVE: CASE EVENT DATE: 20000227
